FAERS Safety Report 8093154-X (Version None)
Quarter: 2012Q1

REPORT INFORMATION
  Report Type: 
  Country: None (occurrence: None)
  Receive Date: 20120128
  Receipt Date: 20111020
  Transmission Date: 20120608
  Serious: No
  Sender: FDA-Public Use
  Company Number: US-ABBOTT-11P-163-0845964-00

PATIENT
  Age: 59 Year
  Sex: Female

DRUGS (5)
  1. HUMIRA [Suspect]
     Indication: PSORIATIC ARTHROPATHY
     Dates: start: 20081001
  2. SYNTHROID [Concomitant]
     Indication: HYPOTHYROIDISM
     Dates: start: 19820101
  3. METFORMIN HCL [Concomitant]
     Indication: PRODUCT USED FOR UNKNOWN INDICATION
     Dates: start: 20090101
  4. HYZAAR [Concomitant]
     Indication: BLOOD PRESSURE
     Dates: start: 19980101
  5. NAPROSYN [Concomitant]
     Indication: PAIN
     Dosage: RARELY TAKING

REACTIONS (8)
  - INJECTION SITE PAIN [None]
  - FATIGUE [None]
  - WHITE BLOOD CELL COUNT [None]
  - ANAEMIA [None]
  - HUNGER [None]
  - INJECTION SITE HAEMATOMA [None]
  - BLOOD TEST ABNORMAL [None]
  - CONTUSION [None]
